FAERS Safety Report 5498896-8 (Version None)
Quarter: 2007Q4

REPORT INFORMATION
  Report Type: 
  Country: None (occurrence: None)
  Receive Date: 20071026
  Receipt Date: 20070802
  Transmission Date: 20080405
  Serious: No
  Sender: FDA-Public Use
  Company Number: A0667878A

PATIENT
  Age: 64 Year
  Sex: Female

DRUGS (6)
  1. ADVAIR DISKUS 100/50 [Suspect]
     Dosage: 1PUFF TWICE PER DAY
     Route: 055
     Dates: start: 20010101
  2. DIOVAN [Concomitant]
  3. CARDIZEM [Concomitant]
  4. NASACORT [Concomitant]
  5. FOSAMAX [Concomitant]
  6. COMBIVENT [Concomitant]

REACTIONS (4)
  - HEART RATE INCREASED [None]
  - HYPERTENSION [None]
  - NERVOUSNESS [None]
  - TREMOR [None]
